FAERS Safety Report 9782411 (Version 2)
Quarter: 2014Q1

REPORT INFORMATION
  Report Type: Report from Study
  Country: MX (occurrence: MX)
  Receive Date: 20131226
  Receipt Date: 20140217
  Transmission Date: 20141002
  Serious: Yes (Death, Other)
  Sender: FDA-Public Use
  Company Number: PHHY2013MX150108

PATIENT
  Age: 44 Year
  Sex: Male
  Weight: 115 kg

DRUGS (3)
  1. GLIVEC [Suspect]
     Indication: CHRONIC MYELOID LEUKAEMIA
     Dosage: 400 MG, UNK
     Dates: start: 20120823
  2. GLIVEC [Suspect]
     Dosage: 600 MG, UNK
     Dates: end: 20130625
  3. GLIVEC [Suspect]
     Dosage: 800 MG, UNK
     Dates: start: 20130625

REACTIONS (8)
  - Thrombocytopenia [Fatal]
  - Central nervous system haemorrhage [Fatal]
  - Tumour haemorrhage [Fatal]
  - Leukaemic infiltration brain [Fatal]
  - Chronic myeloid leukaemia [Unknown]
  - Leukaemia recurrent [Unknown]
  - Blast crisis in myelogenous leukaemia [Unknown]
  - Bone marrow leukaemic cell infiltration [Unknown]
